FAERS Safety Report 23822639 (Version 2)
Quarter: 2024Q2

REPORT INFORMATION
  Report Type: Report from Study
  Country: TW (occurrence: None)
  Receive Date: 20240506
  Receipt Date: 20240510
  Transmission Date: 20240716
  Serious: Yes (Hospitalization)
  Sender: FDA-Public Use
  Company Number: 2024A102568

PATIENT
  Age: 46 Year
  Sex: Female

DRUGS (2)
  1. TEZSPIRE [Suspect]
     Active Substance: TEZEPELUMAB-EKKO
     Indication: Asthma
     Route: 058
     Dates: start: 20240116
  2. SINGULAIR [Concomitant]
     Active Substance: MONTELUKAST SODIUM

REACTIONS (2)
  - Appendicitis [Not Recovered/Not Resolved]
  - Mania [Not Recovered/Not Resolved]

NARRATIVE: CASE EVENT DATE: 20240301
